FAERS Safety Report 5156477-X (Version None)
Quarter: 2006Q4

REPORT INFORMATION
  Report Type: 
  Country: None (occurrence: None)
  Receive Date: 20061113
  Receipt Date: 20061101
  Transmission Date: 20070319
  Serious: Yes (Other)
  Sender: FDA-Public Use
  Company Number: 2006134440

PATIENT
  Age: 65 Year
  Sex: Female
  Weight: 50.3493 kg

DRUGS (5)
  1. XANAX [Suspect]
     Indication: DEPRESSION
     Dosage: 0.5 MG (0.5 MG, 1 IN 1 D), ORAL
     Route: 048
     Dates: start: 20061027, end: 20061028
  2. ALBUTEROL [Concomitant]
  3. ALL OTHER THERAPEUTIC PRODUCTS (ALL OTHER THERAPEUTIC PRODUCTS) [Concomitant]
  4. SINGULAIR [Concomitant]
  5. PREDNISONE TAB [Concomitant]

REACTIONS (3)
  - ASTHENIA [None]
  - FALL [None]
  - LOSS OF CONSCIOUSNESS [None]
